FAERS Safety Report 5131166-6 (Version None)
Quarter: 2006Q4

REPORT INFORMATION
  Report Type: 
  Country: None (occurrence: None)
  Receive Date: 20060830
  Receipt Date: 20050719
  Transmission Date: 20070319
  Serious: Yes (Hospitalization)
  Sender: FDA-Public Use
  Company Number: 200511457BWH

PATIENT

DRUGS (1)
  1. TRASYLOL [Suspect]
     Indication: MEDICAL DEVICE REMOVAL
     Dosage: 1 ML, ONCE, INTRAVENOUS
     Route: 042

REACTIONS (3)
  - ANAPHYLACTIC REACTION [None]
  - HYPOTENSION [None]
  - VASODILATATION [None]
